FAERS Safety Report 8269108 (Version 3)
Quarter: 2012Q4

REPORT INFORMATION
  Report Type: 
  Country: US (occurrence: None)
  Receive Date: 20111122
  Receipt Date: 20120426
  Transmission Date: 20130627
  Serious: No
  Sender: FDA-Public Use
  Company Number: PHHY2011US58728

PATIENT
  Age: 38 Year
  Sex: Female
  Weight: 97.5 kg

DRUGS (10)
  1. GILENYA [Suspect]
     Indication: MULTIPLE SCLEROSIS
     Dosage: 0.5 MG, QD, ORAL
     Route: 048
     Dates: start: 20110308
  2. INDERAL LA [Concomitant]
  3. PAXIL [Concomitant]
  4. NECON (ETHINYLESTRADOL, NORETHISTERONE) TABLET [Concomitant]
  5. VICODIN [Concomitant]
  6. LAMICTAL [Concomitant]
  7. LEVOTHYROXINE (LEVOTHYROXINE) TABLET [Concomitant]
  8. COLACE (DOCUSATE SODIUM) CAPSULE [Concomitant]
  9. ALEVE (NAPROXEN SODIUM) CAPSULE [Concomitant]
  10. VITAMIN D [Concomitant]

REACTIONS (3)
  - Nausea [None]
  - Headache [None]
  - Hypertension [None]
